FAERS Safety Report 22174928 (Version 1)
Quarter: 2023Q2

REPORT INFORMATION
  Report Type: Spontaneous
  Country: US (occurrence: US)
  Receive Date: 20230405
  Receipt Date: 20230405
  Transmission Date: 20230721
  Serious: No
  Sender: FDA-Public Use
  Company Number: US-LUPIN PHARMACEUTICALS INC.-2022-13964

PATIENT
  Age: 32 Year
  Sex: Female

DRUGS (2)
  1. HYDROCODONE BITARTRATE AND ACETAMINOPHEN [Suspect]
     Active Substance: ACETAMINOPHEN\HYDROCODONE BITARTRATE
     Indication: Neuralgia
     Dosage: UNK, 1.5-2 PILLS MAX A DAY
     Route: 065
     Dates: start: 202101
  2. HYDROCODONE BITARTRATE AND ACETAMINOPHEN [Suspect]
     Active Substance: ACETAMINOPHEN\HYDROCODONE BITARTRATE
     Dosage: UNK, NEW REFILL
     Route: 065

REACTIONS (8)
  - Dizziness [Unknown]
  - Bedridden [Unknown]
  - Feeling abnormal [Unknown]
  - Drug tolerance [Unknown]
  - Nausea [Unknown]
  - Drug ineffective for unapproved indication [Unknown]
  - Off label use [Unknown]
  - Extra dose administered [Unknown]
